FAERS Safety Report 20353105 (Version 1)
Quarter: 2022Q1

REPORT INFORMATION
  Report Type: Spontaneous
  Country: US (occurrence: US)
  Receive Date: 20220119
  Receipt Date: 20220119
  Transmission Date: 20220423
  Serious: No
  Sender: FDA-Public Use
  Company Number: US-PFIZER INC-202101408724

PATIENT
  Age: 82 Year
  Sex: Male
  Weight: 60.78 kg

DRUGS (1)
  1. VFEND [Suspect]
     Active Substance: VORICONAZOLE
     Dosage: 200 MG, 3X/DAY (60 DAY SUPPLY 1 PO TID, QTY 180)
     Route: 048

REACTIONS (5)
  - Onychoclasis [Unknown]
  - Muscular weakness [Unknown]
  - Fall [Unknown]
  - Dysarthria [Unknown]
  - Off label use [Unknown]
